FAERS Safety Report 7218857-8 (Version None)
Quarter: 2011Q1

REPORT INFORMATION
  Report Type: 
  Country: None (occurrence: None)
  Receive Date: 20110110
  Receipt Date: 20110107
  Transmission Date: 20110831
  Serious: Yes (Hospitalization, Other)
  Sender: FDA-Public Use
  Company Number: US-ABBOTT-11P-163-0695393-00

PATIENT
  Age: 23 Year
  Sex: Female

DRUGS (2)
  1. HUMIRA [Suspect]
     Indication: PSORIASIS
     Dates: start: 20091101, end: 20101109
  2. HUMIRA [Suspect]
     Dates: start: 20101215

REACTIONS (4)
  - PSORIASIS [None]
  - FACE PRESENTATION [None]
  - PROLONGED LABOUR [None]
  - CAESAREAN SECTION [None]
